FAERS Safety Report 12068866 (Version 2)
Quarter: 2017Q1

REPORT INFORMATION
  Report Type: Spontaneous
  Country: DK (occurrence: DK)
  Receive Date: 20160211
  Receipt Date: 20170120
  Transmission Date: 20170428
  Serious: Yes (Other)
  Sender: FDA-Public Use
  Company Number: DK-BRISTOL-MYERS SQUIBB COMPANY-BMS-2016-006001

PATIENT
  Sex: Male

DRUGS (5)
  1. KODEIN ALTERNOVA [Concomitant]
     Indication: PAIN
     Dosage: 25 MG, UNK
     Route: 048
  2. DAKLINZA [Suspect]
     Active Substance: DACLATASVIR
     Indication: PRODUCT USED FOR UNKNOWN INDICATION
     Dosage: STYRKE: 60 MG.
     Route: 048
     Dates: start: 20141125, end: 20150512
  3. DAKLINZA [Suspect]
     Active Substance: DACLATASVIR
     Indication: CHRONIC HEPATITIS C
     Dosage: 60 MG.
     Route: 048
     Dates: start: 20141125
  4. SOVALDI [Suspect]
     Active Substance: SOFOSBUVIR
     Indication: CHRONIC HEPATITIS C
     Dosage: STYRKE: 400 MG
     Route: 048
     Dates: start: 20141125
  5. SOVALDI [Suspect]
     Active Substance: SOFOSBUVIR
     Indication: PRODUCT USED FOR UNKNOWN INDICATION
     Dosage: STYRKE: 400 MG
     Route: 048
     Dates: start: 20141125, end: 20150512

REACTIONS (8)
  - Diverticulitis [Unknown]
  - Myalgia [Unknown]
  - Pruritus generalised [Unknown]
  - Polyp [Unknown]
  - Pain [Not Recovered/Not Resolved]
  - Headache [Not Recovered/Not Resolved]
  - Polypectomy [Unknown]
  - Arthralgia [Unknown]
